FAERS Safety Report 23845060 (Version 1)
Quarter: 2024Q2

REPORT INFORMATION
  Report Type: Spontaneous
  Country: CN (occurrence: CN)
  Receive Date: 20240511
  Receipt Date: 20240511
  Transmission Date: 20240716
  Serious: Yes (Other)
  Sender: FDA-Public Use
  Company Number: CN-MSNLABS-2024MSNLIT01060

PATIENT

DRUGS (5)
  1. MOXIFLOXACIN HYDROCHLORIDE [Suspect]
     Active Substance: MOXIFLOXACIN HYDROCHLORIDE\MOXIFLOXACIN HYDROCHLORIDE MONOHYDRATE
     Indication: Tuberculosis
     Route: 065
  2. ETHAMBUTOL [Suspect]
     Active Substance: ETHAMBUTOL HYDROCHLORIDE
     Indication: Tuberculosis
     Route: 065
  3. PYRAZINAMIDE [Suspect]
     Active Substance: PYRAZINAMIDE
     Indication: Tuberculosis
     Route: 065
  4. RIFAMPIN [Suspect]
     Active Substance: RIFAMPIN
     Indication: Tuberculosis
     Route: 065
  5. ISONIAZID [Suspect]
     Active Substance: ISONIAZID
     Indication: Tuberculosis
     Route: 065

REACTIONS (1)
  - Treatment failure [Unknown]
